FAERS Safety Report 7210952-2 (Version None)
Quarter: 2011Q1

REPORT INFORMATION
  Report Type: 
  Country: None (occurrence: None)
  Receive Date: 20110105
  Receipt Date: 20101214
  Transmission Date: 20110831
  Serious: Yes (Other)
  Sender: FDA-Public Use
  Company Number: A0897408A

PATIENT
  Age: 49 Year
  Sex: Male
  Weight: 86 kg

DRUGS (5)
  1. ISENTRESS [Concomitant]
  2. INTELENCE [Concomitant]
  3. VIREAD [Concomitant]
  4. EPIVIR [Concomitant]
  5. SELZENTRY [Suspect]
     Indication: HIV INFECTION
     Dosage: 300MG TWICE PER DAY
     Route: 048
     Dates: start: 20040101, end: 20101111

REACTIONS (5)
  - RASH [None]
  - BLISTER [None]
  - PRURITUS [None]
  - URTICARIA [None]
  - SWELLING [None]
